FAERS Safety Report 18103390 (Version 2)
Quarter: 2020Q3

REPORT INFORMATION
  Report Type: Spontaneous
  Country: US (occurrence: US)
  Receive Date: 20200803
  Receipt Date: 20200804
  Transmission Date: 20201103
  Serious: No
  Sender: FDA-Public Use
  Company Number: US-PFIZER INC-2020293434

PATIENT
  Age: 59 Year
  Sex: Female
  Weight: 92.99 kg

DRUGS (1)
  1. IBRANCE [Suspect]
     Active Substance: PALBOCICLIB
     Indication: BREAST CANCER METASTATIC
     Dosage: 100 MG, CYCLIC (ONCE A DAY BY MOUTH FOR 21 DAYS AND 7 DAYS OFF)
     Route: 048
     Dates: start: 202006

REACTIONS (5)
  - Frequent bowel movements [Not Recovered/Not Resolved]
  - Dry mouth [Unknown]
  - Stomatitis [Unknown]
  - Arthralgia [Unknown]
  - Nausea [Not Recovered/Not Resolved]

NARRATIVE: CASE EVENT DATE: 202006
